FAERS Safety Report 4274252-5 (Version None)
Quarter: 2004Q1

REPORT INFORMATION
  Report Type: 
  Country: None (occurrence: None)
  Receive Date: 20040115
  Receipt Date: 20040105
  Transmission Date: 20041129
  Serious: Yes (Hospitalization)
  Sender: FDA-Public Use
  Company Number: 2003190014FR

PATIENT
  Age: 73 Year
  Sex: Female
  Weight: 73 kg

DRUGS (10)
  1. CELEBREX [Suspect]
     Indication: RHEUMATOID ARTHRITIS
     Dosage: ORAL
     Route: 048
     Dates: end: 20031001
  2. PRACTAZIN (SPIRONOLACTONE, ALTHIAZIDE) TABLET [Suspect]
     Indication: HYPERTENSION
     Dosage: 1 DF, ORAL
     Route: 048
     Dates: end: 20031030
  3. METHOTREXATE [Suspect]
     Indication: RHEUMATOID ARTHRITIS
     Dosage: 10 5 MG, WEEKLY, ORAL
     Route: 048
     Dates: start: 20030501, end: 20031030
  4. PREDNISONE [Suspect]
     Indication: RHEUMATOID ARTHRITIS
     Dosage: SEE IMAGE,ORAL
     Route: 048
     Dates: end: 20031106
  5. LIPANOR (CIPROFIBRATE) [Suspect]
     Indication: DYSLIPIDAEMIA
     Dosage: 100 MG, QD, ORAL
     Route: 048
     Dates: end: 20031030
  6. PROPRANOLOL [Concomitant]
  7. DEBRIDAT [Concomitant]
  8. MOPRAL [Concomitant]
  9. DAFALGAN [Concomitant]
  10. CYCLADOL [Concomitant]

REACTIONS (10)
  - DYSLIPIDAEMIA [None]
  - ESSENTIAL HYPERTENSION [None]
  - ESSENTIAL TREMOR [None]
  - GASTRIC ULCER [None]
  - GASTROOESOPHAGEAL REFLUX DISEASE [None]
  - HIATUS HERNIA [None]
  - LUNG ABSCESS [None]
  - OESOPHAGITIS [None]
  - PULMONARY FIBROSIS [None]
  - RHEUMATOID ARTHRITIS [None]
